FAERS Safety Report 24136307 (Version 1)
Quarter: 2024Q3

REPORT INFORMATION
  Report Type: Spontaneous
  Country: US (occurrence: None)
  Receive Date: 20240724
  Receipt Date: 20240724
  Transmission Date: 20241017
  Serious: Yes (Hospitalization)
  Sender: Public
  Company Number: None

PATIENT
  Age: 87 Year
  Sex: Female

DRUGS (1)
  1. NUPLAZID [Suspect]
     Active Substance: PIMAVANSERIN TARTRATE
     Indication: Psychotic disorder
     Dosage: FREQUENCY : DAILY;?
     Route: 048
     Dates: start: 20240227

REACTIONS (4)
  - Loss of personal independence in daily activities [None]
  - Dehydration [None]
  - Unresponsive to stimuli [None]
  - Hypotension [None]

NARRATIVE: CASE EVENT DATE: 20240616
